FAERS Safety Report 6124929-1 (Version None)
Quarter: 2009Q1

REPORT INFORMATION
  Report Type: 
  Country: None (occurrence: None)
  Receive Date: 20090319
  Receipt Date: 20090311
  Transmission Date: 20090719
  Serious: No
  Sender: FDA-Public Use
  Company Number: US-B.I. PHARMACEUTICALS,INC./RIDGEFIELD-2009-BP-03186BP

PATIENT
  Sex: Male

DRUGS (2)
  1. AGGRENOX [Suspect]
  2. EXCEDRIN [Concomitant]
     Indication: HEADACHE

REACTIONS (1)
  - HEADACHE [None]
